FAERS Safety Report 7768549-1 (Version None)
Quarter: 2011Q3

REPORT INFORMATION
  Report Type: 
  Country: None (occurrence: None)
  Receive Date: 20110922
  Receipt Date: 20100907
  Transmission Date: 20111222
  Serious: No
  Sender: FDA-Public Use
  Company Number: US-ASTRAZENECA-2010SE42041

PATIENT
  Age: 43 Year
  Sex: Female
  Weight: 69.9 kg

DRUGS (2)
  1. ZOLOFT [Concomitant]
     Indication: MENOPAUSAL SYMPTOMS
  2. SEROQUEL XR [Suspect]
     Indication: MENOPAUSE
     Route: 048
     Dates: start: 20100827

REACTIONS (2)
  - THERAPEUTIC RESPONSE UNEXPECTED [None]
  - NERVOUSNESS [None]
